FAERS Safety Report 6302319-6 (Version None)
Quarter: 2009Q3

REPORT INFORMATION
  Report Type: 
  Country: None (occurrence: None)
  Receive Date: 20090810
  Receipt Date: 20090727
  Transmission Date: 20100115
  Serious: Yes (Other)
  Sender: FDA-Public Use
  Company Number: AR-PFIZER INC-2009246708

PATIENT
  Age: 64 Year

DRUGS (4)
  1. PREGABALIN [Suspect]
     Indication: DIABETIC NEUROPATHY
     Dosage: 150 MG, UNK
     Dates: start: 20060101
  2. GABAPENTIN [Concomitant]
     Indication: DIABETIC NEUROPATHY
     Dosage: 300 MG, UNK
     Dates: start: 19960101
  3. AMITRIPTYLINE [Concomitant]
     Indication: DIABETIC NEUROPATHY
     Dosage: 25 MG, UNK
     Dates: start: 19960101
  4. INSULIN [Concomitant]
     Indication: DIABETES MELLITUS

REACTIONS (1)
  - PARKINSONISM [None]
